FAERS Safety Report 4886728-8 (Version None)
Quarter: 2006Q1

REPORT INFORMATION
  Report Type: 
  Country: None (occurrence: None)
  Receive Date: 20060119
  Receipt Date: 20060105
  Transmission Date: 20060701
  Serious: Yes (Hospitalization)
  Sender: FDA-Public Use
  Company Number: 8013547

PATIENT
  Age: 22 Month
  Sex: Male
  Weight: 9 kg

DRUGS (3)
  1. KEPPRA [Suspect]
     Indication: SIMPLE PARTIAL SEIZURES
     Dosage: 150 MG 2/D PO
     Route: 048
     Dates: start: 20050606, end: 20050630
  2. PHENOBARBITONE [Concomitant]
  3. LAMOTRIGINE [Concomitant]

REACTIONS (2)
  - CONDITION AGGRAVATED [None]
  - CONVULSION [None]
